FAERS Safety Report 5007849-5 (Version None)
Quarter: 2006Q2

REPORT INFORMATION
  Report Type: 
  Country: None (occurrence: None)
  Receive Date: 20060517
  Receipt Date: 20060509
  Transmission Date: 20061013
  Serious: Yes (Hospitalization, Other)
  Sender: FDA-Public Use
  Company Number: 2006025377

PATIENT
  Sex: Female
  Weight: 113.3993 kg

DRUGS (2)
  1. NORVASC [Suspect]
     Indication: HYPERTENSION
     Dosage: 10 MG (10 MG, DAILY, INTERVAL: EVERY DAY), ORAL
     Route: 048
  2. ATIVAN [Suspect]
     Indication: ILL-DEFINED DISORDER
     Dosage: 2 MG
     Dates: start: 20060101

REACTIONS (4)
  - CHRONIC OBSTRUCTIVE PULMONARY DISEASE [None]
  - FEELING ABNORMAL [None]
  - FLUSHING [None]
  - MALAISE [None]
